FAERS Safety Report 10213698 (Version 2)
Quarter: 2014Q2

REPORT INFORMATION
  Report Type: Spontaneous
  Country: IN (occurrence: None)
  Receive Date: 20140530
  Receipt Date: 20140616
  Transmission Date: 20141212
  Serious: Yes (Life-Threatening)
  Sender: FDA-Public Use
  Company Number: 2014-PEL-000087

PATIENT
  Age: 20 Year
  Sex: Female
  Weight: 32 kg

DRUGS (6)
  1. ISOFLURANE [Suspect]
     Indication: INDUCTION AND MAINTENANCE OF ANAESTHESIA
     Route: 055
  2. CRITIFOL [Suspect]
     Indication: INDUCTION OF ANAESTHESIA
  3. FENTANYL (FENTANYL) [Concomitant]
  4. VECURONIUM (VECURONIUM) [Concomitant]
  5. OXYGEN (OXYGEN) [Concomitant]
  6. NITROUS OXIDE (NITROUS OXIDE) [Concomitant]

REACTIONS (10)
  - Gastrooesophageal sphincter insufficiency [None]
  - Supraventricular extrasystoles [None]
  - Crepitations [None]
  - Pulmonary oedema [None]
  - Respiratory acidosis [None]
  - Pneumothorax [None]
  - Tachycardia [None]
  - Ascariasis [None]
  - Obstructive airways disorder [None]
  - Foreign body [None]
